FAERS Safety Report 6192502-5 (Version None)
Quarter: 2009Q2

REPORT INFORMATION
  Report Type: 
  Country: None (occurrence: None)
  Receive Date: 20090518
  Receipt Date: 20090506
  Transmission Date: 20091009
  Serious: Yes (Life-Threatening)
  Sender: FDA-Public Use
  Company Number: DE-SOLVAY-00309001431

PATIENT
  Age: 24462 Day
  Sex: Male
  Weight: 67 kg

DRUGS (2)
  1. IMODIUM [Concomitant]
     Indication: DIARRHOEA
     Dosage: MAX 8 MG DAILY, ABOUT 5 TIMES DAILY, AS USED 2 MG, STARTED ON 24 DEC, YEAR UNKNOWN
     Route: 048
  2. CREON [Suspect]
     Indication: DRUG USE FOR UNKNOWN INDICATION
     Dosage: DAILY DOSE:  150000 LIP U, AS USED: 25000 UNITS
     Route: 048
     Dates: start: 20090127, end: 20090206

REACTIONS (1)
  - RASH [None]
